FAERS Safety Report 9028727 (Version 2)
Quarter: 2013Q1

REPORT INFORMATION
  Report Type: Spontaneous
  Country: US (occurrence: US)
  Receive Date: 20130124
  Receipt Date: 20130201
  Transmission Date: 20140127
  Serious: Yes (Other)
  Sender: FDA-Public Use
  Company Number: US-009507513-1301USA009184

PATIENT
  Sex: Male
  Weight: 75.11 kg

DRUGS (4)
  1. ALENDRONATE SODIUM [Suspect]
     Indication: OSTEOPENIA
     Dosage: 70 MG, WEEKLY
     Route: 048
     Dates: start: 2011
  2. FOSAMAX [Suspect]
     Indication: OSTEOPENIA
     Dosage: UNK
     Route: 048
     Dates: start: 2007, end: 2011
  3. CARVEDILOL [Concomitant]
     Dosage: UNK
  4. PRAVASTATIN SODIUM [Concomitant]

REACTIONS (1)
  - Foot fracture [Recovered/Resolved]
